FAERS Safety Report 6793939-3 (Version None)
Quarter: 2010Q2

REPORT INFORMATION
  Report Type: 
  Country: None (occurrence: None)
  Receive Date: 20100624
  Receipt Date: 20070412
  Transmission Date: 20101027
  Serious: Yes (Hospitalization)
  Sender: FDA-Public Use
  Company Number: US-PFIZER INC-ENC200700054

PATIENT
  Sex: Male

DRUGS (1)
  1. ARGATROBAN [Suspect]
     Indication: HEPARIN-INDUCED THROMBOCYTOPENIA
     Dosage: 2 MCG/KG/MIN,FREQUENCY:  CONTINUOUS
     Route: 042
     Dates: start: 20070411

REACTIONS (1)
  - COAGULATION TIME PROLONGED [None]
